FAERS Safety Report 14719718 (Version 2)
Quarter: 2018Q3

REPORT INFORMATION
  Report Type: Spontaneous
  Country: US (occurrence: US)
  Receive Date: 20180405
  Receipt Date: 20180719
  Transmission Date: 20181010
  Serious: Yes (Hospitalization, Other)
  Sender: FDA-Public Use
  Company Number: US-ASTRAZENECA-2018SE41480

PATIENT
  Age: 74 Year
  Sex: Female
  Weight: 63 kg

DRUGS (40)
  1. VIGAMOX [Concomitant]
     Active Substance: MOXIFLOXACIN HYDROCHLORIDE
     Indication: ANTIVIRAL TREATMENT
     Dates: start: 201608, end: 201609
  2. PERCOLONE [Concomitant]
     Active Substance: OXYCODONE HYDROCHLORIDE
     Dosage: 5.0MG UNKNOWN
     Dates: start: 20121012
  3. VALACICLOVIR [Concomitant]
     Active Substance: VALACYCLOVIR HYDROCHLORIDE
     Dosage: 1000.0MG UNKNOWN
     Dates: start: 20140527
  4. ANCEF [Concomitant]
     Active Substance: CEFAZOLIN SODIUM
     Dates: start: 20121012
  5. MELOXICAM. [Concomitant]
     Active Substance: MELOXICAM
     Indication: ANTIVIRAL TREATMENT
     Dates: start: 200902, end: 201206
  6. XANAX [Concomitant]
     Active Substance: ALPRAZOLAM
     Dosage: 0.5MG UNKNOWN
     Dates: start: 20080412
  7. ONDANSETRON [Concomitant]
     Active Substance: ONDANSETRON
     Dosage: 4.0MG UNKNOWN
     Dates: start: 20121029
  8. DICYCLOMINE [Concomitant]
     Active Substance: DICYCLOMINE HYDROCHLORIDE
     Dosage: 20.0MG UNKNOWN
     Dates: start: 20150717
  9. DILAUDID [Concomitant]
     Active Substance: HYDROMORPHONE HYDROCHLORIDE
     Dates: start: 20121012
  10. HYDROCHLOROTHIAZIDE. [Concomitant]
     Active Substance: HYDROCHLOROTHIAZIDE
     Indication: ANTIVIRAL TREATMENT
     Dates: start: 201201, end: 201207
  11. PRAVASTATIN. [Concomitant]
     Active Substance: PRAVASTATIN
     Indication: ANTIVIRAL TREATMENT
     Dosage: 10.0MG UNKNOWN
     Dates: start: 201201, end: 201711
  12. TRAMADOL HYDROCHLORIDE. [Concomitant]
     Active Substance: TRAMADOL HYDROCHLORIDE
     Indication: ANTIVIRAL TREATMENT
     Dates: start: 201606
  13. CETIRIZINE HYDROCHLORIDE. [Concomitant]
     Active Substance: CETIRIZINE HYDROCHLORIDE
     Indication: ANTIVIRAL TREATMENT
     Dates: start: 2015
  14. AZATHIOPRINE. [Concomitant]
     Active Substance: AZATHIOPRINE
     Dosage: 50.0MG UNKNOWN
     Dates: start: 20160422
  15. ALPRAZOLAM. [Concomitant]
     Active Substance: ALPRAZOLAM
     Dosage: 0.5MG UNKNOWN
     Dates: start: 20160220
  16. NEXIUM [Suspect]
     Active Substance: ESOMEPRAZOLE MAGNESIUM
     Indication: DYSPEPSIA
     Dosage: 40.0MG UNKNOWN
     Route: 048
     Dates: start: 2009, end: 2013
  17. PROTONIX [Suspect]
     Active Substance: PANTOPRAZOLE SODIUM
     Indication: COLITIS ULCERATIVE
     Route: 048
     Dates: start: 2009, end: 2013
  18. AMOXICILLIN. [Concomitant]
     Active Substance: AMOXICILLIN
     Indication: ANTIVIRAL TREATMENT
     Dates: start: 201012, end: 201805
  19. DICLOFENAC SODIUM. [Concomitant]
     Active Substance: DICLOFENAC SODIUM
     Indication: ANTIVIRAL TREATMENT
     Dates: start: 201405, end: 201505
  20. SULFASALAZINE. [Concomitant]
     Active Substance: SULFASALAZINE
     Indication: ANTIVIRAL TREATMENT
     Dates: start: 200510, end: 201512
  21. MISOPROSTOL. [Concomitant]
     Active Substance: MISOPROSTOL
     Dosage: 200.0UG UNKNOWN
     Dates: start: 20110607
  22. GABAPENTIN. [Concomitant]
     Active Substance: GABAPENTIN
     Route: 048
     Dates: start: 20121001
  23. SULFASALAZINE. [Concomitant]
     Active Substance: SULFASALAZINE
     Dosage: 600.0MG UNKNOWN
     Dates: start: 20150717
  24. FERROUS SULFATE. [Concomitant]
     Active Substance: FERROUS SULFATE
     Indication: DIARRHOEA
     Dosage: 325.0MG UNKNOWN
     Route: 048
     Dates: start: 20121015, end: 20121022
  25. OMEPRAZOLE. [Suspect]
     Active Substance: OMEPRAZOLE
     Indication: DYSPEPSIA
     Route: 048
     Dates: start: 20120501
  26. PROTONIX [Suspect]
     Active Substance: PANTOPRAZOLE SODIUM
     Indication: COLITIS ULCERATIVE
     Route: 048
     Dates: start: 20121001
  27. FLUCONAZOLE. [Concomitant]
     Active Substance: FLUCONAZOLE
     Dosage: 100.0MG UNKNOWN
     Dates: start: 20140110
  28. NEXIUM [Suspect]
     Active Substance: ESOMEPRAZOLE MAGNESIUM
     Indication: DYSPEPSIA
     Route: 048
     Dates: start: 20081112
  29. ACYCLOVIR. [Concomitant]
     Active Substance: ACYCLOVIR
     Indication: ANTIVIRAL TREATMENT
     Dates: start: 201102, end: 201103
  30. IMODIUM [Concomitant]
     Active Substance: LOPERAMIDE HYDROCHLORIDE
     Indication: DIARRHOEA
     Dosage: 2.0MG UNKNOWN
     Route: 048
     Dates: start: 20121010
  31. FENTANYL. [Concomitant]
     Active Substance: FENTANYL
     Dates: start: 20121028
  32. OXYCODONE?ACETAMINOPHEN [Concomitant]
     Active Substance: ACETAMINOPHEN\OXYCODONE HYDROCHLORIDE
     Dates: start: 20121112
  33. OMEPRAZOLE. [Suspect]
     Active Substance: OMEPRAZOLE
     Indication: DYSPEPSIA
     Dosage: 40.0MG UNKNOWN
     Route: 048
     Dates: start: 2013, end: 2017
  34. CIPROFLOXACIN. [Concomitant]
     Active Substance: CIPROFLOXACIN
     Indication: ANTIVIRAL TREATMENT
     Dates: start: 201009, end: 201010
  35. DOXYCYCLINE HYCLATE. [Concomitant]
     Active Substance: DOXYCYCLINE HYCLATE
     Indication: ANTIVIRAL TREATMENT
     Dates: start: 201301, end: 201408
  36. TUMS [Concomitant]
     Active Substance: CALCIUM CARBONATE
     Dosage: 500?750 MG
  37. AMBIEN [Concomitant]
     Active Substance: ZOLPIDEM TARTRATE
     Dosage: 10.0MG UNKNOWN
     Dates: start: 20080412
  38. PROPRANOLOL [Concomitant]
     Active Substance: PROPRANOLOL HYDROCHLORIDE
     Dosage: 20.0MG UNKNOWN
     Dates: start: 20090917
  39. OXYBUTYNIN. [Concomitant]
     Active Substance: OXYBUTYNIN CHLORIDE
     Dosage: 5.0MG UNKNOWN
     Dates: start: 20131110
  40. VANCOMYCIN [Concomitant]
     Active Substance: VANCOMYCIN
     Dates: start: 20121014

REACTIONS (2)
  - Acute kidney injury [Recovered/Resolved]
  - Chronic kidney disease [Not Recovered/Not Resolved]

NARRATIVE: CASE EVENT DATE: 20121002
